FAERS Safety Report 24718103 (Version 1)
Quarter: 2024Q4

REPORT INFORMATION
  Report Type: Spontaneous
  Country: US (occurrence: None)
  Receive Date: 20241209
  Receipt Date: 20241209
  Transmission Date: 20250114
  Serious: No
  Sender: Public
  Company Number: None

PATIENT
  Age: 36 Year
  Sex: Male
  Weight: 106.2 kg

DRUGS (6)
  1. NURTEC ODT [Suspect]
     Active Substance: RIMEGEPANT SULFATE
     Indication: Hemiplegic migraine
     Dosage: OTHER QUANTITY : 1 CAPSULE(S);?FREQUENCY : DAILY;?OTHER ROUTE : SUBLINGUAL;?
     Route: 060
     Dates: start: 20241208
  2. DIETARY SUPPLEMENT [Suspect]
     Active Substance: DIETARY SUPPLEMENT
  3. BOTOX [Concomitant]
     Active Substance: ONABOTULINUMTOXINA
  4. NURTEC ODT [Concomitant]
     Active Substance: RIMEGEPANT SULFATE
  5. target brand excedrin [Concomitant]
  6. TOTAL BEETS [Concomitant]

REACTIONS (5)
  - Chest pain [None]
  - Flushing [None]
  - Palpitations [None]
  - Anxiety [None]
  - Heart rate increased [None]

NARRATIVE: CASE EVENT DATE: 20241208
